FAERS Safety Report 23756138 (Version 1)
Quarter: 2024Q2

REPORT INFORMATION
  Report Type: Spontaneous
  Country: CN (occurrence: CN)
  Receive Date: 20240418
  Receipt Date: 20240418
  Transmission Date: 20240716
  Serious: Yes (Other)
  Sender: FDA-Public Use
  Company Number: CN-GILEAD-2024-0667375

PATIENT
  Age: 48 Year
  Sex: Male

DRUGS (3)
  1. TRODELVY [Suspect]
     Active Substance: SACITUZUMAB GOVITECAN-HZIY
     Indication: Undifferentiated nasopharyngeal carcinoma
     Dosage: 360 MG, QD
     Route: 042
     Dates: start: 20230625, end: 20230625
  2. RECOMBINANT HUMAN GRANULOCYTE COLONY STIMULATING FACTOR FOR INJECTION [Concomitant]
     Dosage: 300 UG
  3. THROMBOPOIETIN [Concomitant]
     Active Substance: THROMBOPOIETIN
     Dosage: 15000U

REACTIONS (1)
  - Myelosuppression [Recovering/Resolving]

NARRATIVE: CASE EVENT DATE: 20230629
